APPROVED DRUG PRODUCT: HYDROCORTISONE SODIUM SUCCINATE
Active Ingredient: HYDROCORTISONE SODIUM SUCCINATE
Strength: EQ 500MG BASE/VIAL
Dosage Form/Route: INJECTABLE;INJECTION
Application: A088669 | Product #001
Applicant: ABRAXIS PHARMACEUTICAL PRODUCTS
Approved: Jun 8, 1984 | RLD: No | RS: No | Type: DISCN